FAERS Safety Report 7242858-7 (Version None)
Quarter: 2011Q1

REPORT INFORMATION
  Report Type: 
  Country: None (occurrence: None)
  Receive Date: 20110125
  Receipt Date: 20110119
  Transmission Date: 20110831
  Serious: Yes (Other)
  Sender: FDA-Public Use
  Company Number: DE-PFIZER INC-2010162090

PATIENT
  Age: 65 Year
  Sex: Female
  Weight: 65 kg

DRUGS (2)
  1. LYRICA [Suspect]
     Dosage: 75 MG, ALTERNATE DAY
  2. LYRICA [Suspect]
     Indication: HERPES ZOSTER
     Dosage: 150 MG, 2X/DAY

REACTIONS (6)
  - NAUSEA [None]
  - RESTLESSNESS [None]
  - HYPERHIDROSIS [None]
  - WITHDRAWAL SYNDROME [None]
  - INFLAMMATION [None]
  - PANIC ATTACK [None]
